FAERS Safety Report 5145336-4 (Version None)
Quarter: 2006Q4

REPORT INFORMATION
  Report Type: 
  Country: None (occurrence: None)
  Receive Date: 20061101
  Receipt Date: 20061018
  Transmission Date: 20070319
  Serious: Yes (Death)
  Sender: FDA-Public Use
  Company Number: 8019730

PATIENT
  Age: 11 Year
  Sex: Male

DRUGS (2)
  1. KEPPRA [Suspect]
     Indication: PETIT MAL EPILEPSY
     Dosage: 500 MG 2/D PO
     Route: 048
     Dates: start: 20060428, end: 20060819
  2. DEPAKOTE [Suspect]
     Indication: PETIT MAL EPILEPSY
     Dosage: 1200 MG /D PO
     Route: 048
     Dates: start: 20060610, end: 20060819

REACTIONS (2)
  - DRUG EFFECT DECREASED [None]
  - SUDDEN DEATH [None]
